FAERS Safety Report 12139002 (Version 2)
Quarter: 2016Q2

REPORT INFORMATION
  Report Type: Spontaneous
  Country: HR (occurrence: HR)
  Receive Date: 20160302
  Receipt Date: 20160412
  Transmission Date: 20160815
  Serious: Yes (Death, Life-Threatening, Hospitalization)
  Sender: FDA-Public Use
  Company Number: HR-ABBVIE-16P-216-1569425-00

PATIENT
  Age: 60 Year
  Sex: Female

DRUGS (6)
  1. RIBAVIRIN. [Concomitant]
     Active Substance: RIBAVIRIN
     Indication: CHRONIC HEPATITIS C
     Route: 048
  2. HALDOL [Concomitant]
     Active Substance: HALOPERIDOL
     Indication: PRODUCT USED FOR UNKNOWN INDICATION
     Dosage: 0,0,1 MG
  3. VIEKIRA PAK [Suspect]
     Active Substance: DASABUVIR\OMBITASVIR\PARITAPREVIR\RITONAVIR
     Indication: CHRONIC HEPATITIS C
     Dosage: 2 TBL VIEKIRAX
     Route: 048
     Dates: start: 20151117, end: 20160209
  4. NORMABEL [Concomitant]
     Active Substance: DIAZEPAM
     Indication: PRODUCT USED FOR UNKNOWN INDICATION
     Dosage: 5 MG AS NEEDED
  5. TOPAMAX [Concomitant]
     Active Substance: TOPIRAMATE
     Indication: PRODUCT USED FOR UNKNOWN INDICATION
     Dosage: 50, 0, 50 MG
  6. FEVARIN [Concomitant]
     Active Substance: FLUVOXAMINE MALEATE
     Indication: PRODUCT USED FOR UNKNOWN INDICATION
     Dosage: 0,0,50 MG

REACTIONS (8)
  - Seizure [Fatal]
  - Vertigo [Unknown]
  - Head injury [Fatal]
  - Dizziness [Unknown]
  - Cerebral haemorrhage [Fatal]
  - Fall [Fatal]
  - Skull fracture [Fatal]
  - Nausea [Recovered/Resolved]

NARRATIVE: CASE EVENT DATE: 20160218
